FAERS Safety Report 10757810 (Version 1)
Quarter: 2015Q1

REPORT INFORMATION
  Report Type: Spontaneous
  Country: US (occurrence: None)
  Receive Date: 20150202
  Receipt Date: 20150202
  Transmission Date: 20150721
  Serious: Yes (Other)
  Sender: FDA-Public Use
  Company Number: None

PATIENT
  Age: 62 Year
  Sex: Male
  Weight: 81.19 kg

DRUGS (8)
  1. LIPITOR [Concomitant]
     Active Substance: ATORVASTATIN CALCIUM
  2. HUMALOG 75/25 KWIKPEN [Concomitant]
  3. ASPIRIN. [Concomitant]
     Active Substance: ASPIRIN
  4. LOPID [Concomitant]
     Active Substance: GEMFIBROZIL
  5. LISINOPRIL. [Concomitant]
     Active Substance: LISINOPRIL
  6. HUMALOG [Suspect]
     Active Substance: INSULIN LISPRO
     Dosage: INJECTION
     Dates: start: 20150107, end: 20150129
  7. LEVEMIR [Concomitant]
     Active Substance: INSULIN DETEMIR
  8. GLUCOPHAGE [Concomitant]
     Active Substance: METFORMIN HYDROCHLORIDE

REACTIONS (3)
  - Blood glucose increased [None]
  - Incorrect dose administered [None]
  - Device failure [None]

NARRATIVE: CASE EVENT DATE: 20150128
